FAERS Safety Report 4710812-2 (Version None)
Quarter: 2005Q3

REPORT INFORMATION
  Report Type: 
  Country: None (occurrence: None)
  Receive Date: 20050708
  Receipt Date: 20050627
  Transmission Date: 20060218
  Serious: Yes (Other)
  Sender: FDA-Public Use
  Company Number: 2005089462

PATIENT
  Age: 55 Year
  Sex: Female
  Weight: 61.2356 kg

DRUGS (3)
  1. SUDAFED 12 HOUR [Suspect]
     Indication: NASAL CONGESTION
     Dosage: 2 TABS ONCE, ORAL
     Route: 048
     Dates: start: 20050604, end: 20050604
  2. LANSOPRAZOLE [Concomitant]
  3. LORATADINE [Concomitant]

REACTIONS (4)
  - ABDOMINAL DISTENSION [None]
  - ABDOMINAL PAIN [None]
  - NO REACTION ON PREVIOUS EXPOSURE TO DRUG [None]
  - URINARY RETENTION [None]
